FAERS Safety Report 7262528-9 (Version None)
Quarter: 2011Q1

REPORT INFORMATION
  Report Type: 
  Country: None (occurrence: None)
  Receive Date: 20110130
  Receipt Date: 20101209
  Transmission Date: 20110831
  Serious: No
  Sender: FDA-Public Use
  Company Number: US-ABBOTT-10P-163-0690694-00

PATIENT
  Age: 53 Year
  Sex: Female

DRUGS (14)
  1. NORVASC [Concomitant]
     Indication: HYPERTENSION
  2. CALCIUM WITH VITAMIN D [Concomitant]
     Indication: IMMUNE ENHANCEMENT THERAPY
  3. INSULIN [Concomitant]
     Indication: DIABETES MELLITUS
  4. NAPROSYN [Concomitant]
     Indication: PAIN
  5. METFORMIN [Concomitant]
     Indication: DIABETES MELLITUS
  6. NIASPAN [Concomitant]
     Indication: DRUG THERAPY
  7. ALDACTONE [Concomitant]
     Indication: HYPERTENSION
  8. ZOPRANEX INHALATION SOLUTION [Concomitant]
     Indication: PRODUCT USED FOR UNKNOWN INDICATION
     Route: 055
  9. ABAPRO [Concomitant]
     Indication: BLOOD PRESSURE
  10. CRESTOR [Concomitant]
     Indication: BLOOD CHOLESTEROL INCREASED
  11. OMEGA FISH OIL [Concomitant]
     Indication: IMMUNE ENHANCEMENT THERAPY
  12. HUMIRA [Suspect]
     Indication: PSORIASIS
     Dates: start: 20100101
  13. UNKNOWN INHALER [Concomitant]
     Indication: RESPIRATORY DISORDER
  14. PLAVIX [Concomitant]
     Indication: BLOOD CHOLESTEROL INCREASED

REACTIONS (2)
  - SKIN DISCOLOURATION [None]
  - PSORIASIS [None]
